FAERS Safety Report 24685106 (Version 1)
Quarter: 2024Q4

REPORT INFORMATION
  Report Type: Spontaneous
  Country: DE (occurrence: DE)
  Receive Date: 20241202
  Receipt Date: 20241202
  Transmission Date: 20250115
  Serious: Yes (Hospitalization)
  Sender: Steriscience PTE
  Company Number: DE-STERISCIENCE B.V.-2024-ST-002017

PATIENT
  Age: 40 Year
  Sex: Male

DRUGS (17)
  1. PIPERACILLIN SODIUM\TAZOBACTAM SODIUM [Suspect]
     Active Substance: PIPERACILLIN SODIUM\TAZOBACTAM SODIUM
     Indication: Bacterial infection
     Dosage: UNK
     Route: 065
  2. MEROPENEM [Suspect]
     Active Substance: MEROPENEM
     Indication: Acute kidney injury
     Dosage: UNK
     Route: 065
  3. MEROPENEM [Suspect]
     Active Substance: MEROPENEM
     Indication: Rhabdomyolysis
  4. MEROPENEM [Suspect]
     Active Substance: MEROPENEM
     Indication: Shock
  5. METRONIDAZOLE [Suspect]
     Active Substance: METRONIDAZOLE
     Indication: Bacterial infection
     Dosage: UNK
     Route: 065
  6. CYTARABINE [Concomitant]
     Active Substance: CYTARABINE
     Indication: Acute myeloid leukaemia
     Dosage: UNK
     Route: 065
  7. CYTARABINE [Concomitant]
     Active Substance: CYTARABINE
     Indication: NPM1 gene mutation
  8. DAUNORUBICIN [Concomitant]
     Active Substance: DAUNORUBICIN
     Indication: Acute myeloid leukaemia
     Dosage: UNK
     Route: 065
  9. DAUNORUBICIN [Concomitant]
     Active Substance: DAUNORUBICIN
     Indication: NPM1 gene mutation
  10. GEMTUZUMAB OZOGAMICIN [Concomitant]
     Active Substance: GEMTUZUMAB OZOGAMICIN
     Indication: Acute myeloid leukaemia
     Dosage: UNK
     Route: 065
  11. GEMTUZUMAB OZOGAMICIN [Concomitant]
     Active Substance: GEMTUZUMAB OZOGAMICIN
     Indication: NPM1 gene mutation
  12. TIGECYCLINE [Concomitant]
     Active Substance: TIGECYCLINE
     Indication: Acute kidney injury
     Dosage: UNK
     Route: 065
  13. TIGECYCLINE [Concomitant]
     Active Substance: TIGECYCLINE
     Indication: Rhabdomyolysis
  14. TIGECYCLINE [Concomitant]
     Active Substance: TIGECYCLINE
     Indication: Shock
  15. CLINDAMYCIN [Concomitant]
     Active Substance: CLINDAMYCIN
     Indication: Acute kidney injury
     Dosage: UNK
     Route: 065
  16. CLINDAMYCIN [Concomitant]
     Active Substance: CLINDAMYCIN
     Indication: Rhabdomyolysis
  17. CLINDAMYCIN [Concomitant]
     Active Substance: CLINDAMYCIN
     Indication: Shock

REACTIONS (5)
  - Hypotension [Recovered/Resolved]
  - Tachycardia [Recovered/Resolved]
  - Somnolence [Recovered/Resolved]
  - Drug ineffective [Unknown]
  - Off label use [Unknown]
